FAERS Safety Report 8325764-6 (Version None)
Quarter: 2012Q2

REPORT INFORMATION
  Report Type: 
  Country: None (occurrence: None)
  Receive Date: 20120501
  Receipt Date: 20120420
  Transmission Date: 20120825
  Serious: No
  Sender: FDA-Public Use
  Company Number: US-BIOGENIDEC-2011BI038606

PATIENT
  Age: 31 Year
  Sex: Male

DRUGS (1)
  1. TYSABRI [Suspect]
     Indication: MULTIPLE SCLEROSIS
     Route: 042
     Dates: start: 20070820

REACTIONS (5)
  - GAIT DISTURBANCE [None]
  - MENTAL IMPAIRMENT [None]
  - BALANCE DISORDER [None]
  - COORDINATION ABNORMAL [None]
  - MULTIPLE SCLEROSIS [None]
